FAERS Safety Report 9461477 (Version 1)
Quarter: 2013Q3

REPORT INFORMATION
  Report Type: Spontaneous
  Country: AU (occurrence: AU)
  Receive Date: 20130816
  Receipt Date: 20130816
  Transmission Date: 20140515
  Serious: Yes (Disabling, Other)
  Sender: FDA-Public Use
  Company Number: PHHY2013AU081667

PATIENT
  Age: 51 Year
  Sex: Female
  Weight: 43.5 kg

DRUGS (8)
  1. GILENYA [Suspect]
     Indication: MULTIPLE SCLEROSIS
     Dosage: UNK UKN, QD
     Route: 048
     Dates: start: 20111214, end: 20130606
  2. BACLOFEN [Concomitant]
     Indication: MUSCLE SPASMS
     Dosage: 5 MG, TDS
     Route: 048
     Dates: start: 201003
  3. IMODIUM [Concomitant]
     Indication: DIARRHOEA
     Dosage: UNK UKN, PRN
     Route: 048
     Dates: start: 20110228
  4. CRESTOR [Concomitant]
     Indication: HYPERCHOLESTEROLAEMIA
     Dosage: 50 MG, QD
     Route: 048
     Dates: start: 20100317
  5. CYMBALTA [Concomitant]
     Indication: DEPRESSION
     Dosage: 60 MG, QD
     Route: 048
     Dates: start: 20100317
  6. PANAMAX [Concomitant]
     Indication: PAIN
     Dosage: UNK UKN, PRN
     Route: 048
     Dates: start: 20090929
  7. NEO-MERCAZOLE [Concomitant]
     Indication: THYROID DISORDER
     Dosage: UNK UKN, UNK
     Route: 048
     Dates: start: 20091115
  8. DIAZEPAM [Concomitant]
     Dosage: 5 MG, QD
     Route: 048
     Dates: start: 20090929

REACTIONS (5)
  - Nausea [Recovered/Resolved]
  - Vomiting [Recovered/Resolved]
  - Decreased appetite [Unknown]
  - Weight decreased [Unknown]
  - Drug intolerance [Unknown]
